FAERS Safety Report 14895263 (Version 1)
Quarter: 2018Q2

REPORT INFORMATION
  Report Type: Spontaneous
  Country: CZ (occurrence: CZ)
  Receive Date: 20180515
  Receipt Date: 20180515
  Transmission Date: 20180711
  Serious: Yes (Hospitalization, Other)
  Sender: FDA-Public Use
  Company Number: CZ-ALEMBIC PHARMACUETICALS LIMITED-2018SCAL000330

PATIENT

DRUGS (1)
  1. LITHIUM CARBONATE. [Suspect]
     Active Substance: LITHIUM CARBONATE
     Indication: BIPOLAR DISORDER
     Dosage: UNK
     Route: 065

REACTIONS (8)
  - Toxicity to various agents [Recovering/Resolving]
  - Encephalopathy [Recovering/Resolving]
  - Gait disturbance [Recovering/Resolving]
  - Myoclonus [Recovering/Resolving]
  - Acute motor-sensory axonal neuropathy [Recovering/Resolving]
  - Muscular weakness [Recovering/Resolving]
  - Memory impairment [Recovering/Resolving]
  - Speech disorder [Recovering/Resolving]
